FAERS Safety Report 9252144 (Version 1)
Quarter: 2013Q1

REPORT INFORMATION
  Report Type: Spontaneous
  Country: US (occurrence: None)
  Receive Date: 20130305
  Receipt Date: 20130305
  Transmission Date: 20140127
  Serious: Yes (Other)
  Sender: FDA-Public Use
  Company Number: 163-21880-12083382

PATIENT
  Age: 76 Year
  Sex: Female

DRUGS (4)
  1. REVLIMID [Suspect]
     Indication: MYELODYSPLASTIC SYNDROME
     Dosage: 10 MG, 28 IN 28 D, PO
     Route: 048
     Dates: start: 20120814
  2. GABAPENTIN(GABAPENTIN) [Concomitant]
  3. SYNTHROID (LEVOTHYROXINE SODIUM) [Concomitant]
  4. NEUPOGEN (FILGRASTIM) [Concomitant]

REACTIONS (7)
  - Insomnia [None]
  - Fatigue [None]
  - Platelet count decreased [None]
  - White blood cell count decreased [None]
  - Anaemia [None]
  - Night sweats [None]
  - Diarrhoea [None]
